FAERS Safety Report 16368063 (Version 1)
Quarter: 2019Q2

REPORT INFORMATION
  Report Type: Spontaneous
  Country: FR (occurrence: FR)
  Receive Date: 20190529
  Receipt Date: 20190529
  Transmission Date: 20190711
  Serious: Yes (Hospitalization)
  Sender: FDA-Public Use
  Company Number: FR-MYLANLABS-2019M1050090

PATIENT
  Age: 50 Year
  Sex: Male

DRUGS (9)
  1. RISPERDAL [Concomitant]
     Active Substance: RISPERIDONE
     Indication: PRODUCT USED FOR UNKNOWN INDICATION
     Dosage: 4 MILLIGRAM, QD
     Route: 048
     Dates: end: 20120515
  2. QUETIAPINE. [Suspect]
     Active Substance: QUETIAPINE
     Indication: PRODUCT USED FOR UNKNOWN INDICATION
     Dosage: 300 MILLIGRAM, TOTAL (STRENGTH: 300 MG)
     Route: 048
     Dates: start: 20120524
  3. QUETIAPINE. [Interacting]
     Active Substance: QUETIAPINE
     Dosage: 300 MILLIGRAM, TOTAL
     Route: 048
     Dates: start: 20120525
  4. TERCIAN                            /00759301/ [Interacting]
     Active Substance: CYAMEMAZINE
     Indication: PRODUCT USED FOR UNKNOWN INDICATION
     Dosage: 12.5 MILLIGRAM, QD (ENGTH: 25 MG)
     Route: 048
     Dates: start: 20120522
  5. ABILIFY [Concomitant]
     Active Substance: ARIPIPRAZOLE
     Indication: PRODUCT USED FOR UNKNOWN INDICATION
     Dosage: STRENGTH: 15MG
     Dates: start: 20120521, end: 20120523
  6. EFFEXOR [Concomitant]
     Active Substance: VENLAFAXINE HYDROCHLORIDE
     Indication: PRODUCT USED FOR UNKNOWN INDICATION
     Dosage: UNK
     Dates: start: 20120521, end: 20120522
  7. GLIMEPIRIDE. [Concomitant]
     Active Substance: GLIMEPIRIDE
     Indication: PRODUCT USED FOR UNKNOWN INDICATION
     Dosage: 2 MILLIGRAM, QD (STRENGTH: 2MG)
     Route: 048
  8. LEPTICUR [Concomitant]
     Active Substance: TROPATEPINE HYDROCHLORIDE
     Indication: PRODUCT USED FOR UNKNOWN INDICATION
     Dosage: 10 MILLIGRAM
     Dates: start: 20120525
  9. TERCIAN                            /00759301/ [Interacting]
     Active Substance: CYAMEMAZINE
     Dosage: 0.5 DOSAGE FORM, QD (STRENGTH: 25 MG)
     Route: 048
     Dates: start: 20120523, end: 20120531

REACTIONS (4)
  - Drug interaction [Recovered/Resolved]
  - Blood creatine phosphokinase increased [Recovered/Resolved]
  - Catatonia [Recovering/Resolving]
  - Urinary retention [Recovered/Resolved]

NARRATIVE: CASE EVENT DATE: 20120526
